FAERS Safety Report 5642868-7 (Version None)
Quarter: 2008Q1

REPORT INFORMATION
  Report Type: 
  Country: None (occurrence: None)
  Receive Date: 20080228
  Receipt Date: 20080220
  Transmission Date: 20080703
  Serious: Yes (Hospitalization)
  Sender: FDA-Public Use
  Company Number: PHHO2005US02153

PATIENT
  Age: 67 Year
  Sex: Female
  Weight: 57.8 kg

DRUGS (13)
  1. ZOLEDRONIC ACID [Suspect]
     Indication: METASTASES TO BONE
     Dosage: NO TREATMENT - DELAYED START
  2. FEMARA [Suspect]
     Indication: BREAST CANCER
     Dosage: 2.5 MG, QD
     Route: 048
     Dates: start: 20030129
  3. ASPIRIN [Concomitant]
     Indication: PROPHYLAXIS
     Dosage: 81 MG, QD
     Route: 048
     Dates: start: 19980101
  4. COREG [Concomitant]
     Indication: CARDIOMYOPATHY
     Dosage: 12.5 MG, BID
     Route: 048
     Dates: start: 19980101
  5. FUROSEMIDE [Concomitant]
     Indication: OEDEMA PERIPHERAL
     Dosage: 40 MG, BID
     Route: 048
     Dates: start: 19960101
  6. VITAMIN D [Concomitant]
  7. CALCIUM [Concomitant]
  8. ASCORBIC ACID [Concomitant]
     Dosage: 400 MG, QD
     Route: 048
  9. VITAMIN CAP [Concomitant]
  10. VITAMIN E [Concomitant]
     Dosage: 400 IU, QD
  11. LANOXIN [Concomitant]
     Indication: CARDIOMYOPATHY
     Dosage: 0.25 MG, QD
     Route: 048
     Dates: start: 19960101
  12. LIPITOR [Concomitant]
     Indication: HYPERCHOLESTEROLAEMIA
     Dosage: 10 MG, QD
     Route: 048
     Dates: start: 19960101
  13. LISINOPRIL [Concomitant]
     Indication: CARDIOMYOPATHY
     Dosage: 40 MG, QD
     Route: 048
     Dates: start: 19960101

REACTIONS (5)
  - BONE DENSITY DECREASED [None]
  - FALL [None]
  - FEMORAL NECK FRACTURE [None]
  - HIP ARTHROPLASTY [None]
  - OSTEOPOROSIS [None]
